FAERS Safety Report 5141607-6 (Version None)
Quarter: 2006Q4

REPORT INFORMATION
  Report Type: 
  Country: None (occurrence: None)
  Receive Date: 20061026
  Receipt Date: 20061009
  Transmission Date: 20070319
  Serious: Yes (Other)
  Sender: FDA-Public Use
  Company Number: 2006027792

PATIENT
  Age: 72 Year
  Sex: Female
  Weight: 72.5755 kg

DRUGS (4)
  1. BEXTRA [Suspect]
     Indication: BACK PAIN
  2. LISINOPRIL [Concomitant]
  3. WARFARIN SODIUM [Concomitant]
  4. LIPITOR [Concomitant]

REACTIONS (3)
  - CEREBROVASCULAR ACCIDENT [None]
  - RASH MACULO-PAPULAR [None]
  - RASH PRURITIC [None]
